FAERS Safety Report 7255361-5 (Version None)
Quarter: 2011Q1

REPORT INFORMATION
  Report Type: 
  Country: None (occurrence: None)
  Receive Date: 20110129
  Receipt Date: 20100319
  Transmission Date: 20110831
  Serious: No
  Sender: FDA-Public Use
  Company Number: US-ABBOTT-10P-163-0634560-00

PATIENT
  Sex: Female

DRUGS (1)
  1. HUMIRA [Suspect]
     Indication: RHEUMATOID ARTHRITIS
     Dates: start: 20061101, end: 20100310

REACTIONS (5)
  - PYREXIA [None]
  - COMPUTERISED TOMOGRAM ABNORMAL [None]
  - WEIGHT DECREASED [None]
  - DECREASED APPETITE [None]
  - INTESTINAL OBSTRUCTION [None]
